FAERS Safety Report 9602200 (Version 1)
Quarter: 2013Q4

REPORT INFORMATION
  Report Type: Spontaneous
  Country: US (occurrence: US)
  Receive Date: 20131007
  Receipt Date: 20131007
  Transmission Date: 20140711
  Serious: Yes (Hospitalization)
  Sender: FDA-Public Use
  Company Number: US-ASTELLAS-2013US010234

PATIENT
  Age: 60 Year
  Sex: Male

DRUGS (1)
  1. PROGRAF [Suspect]
     Indication: LIVER TRANSPLANT
     Dosage: 2 MG QAM, 1 MG QPM
     Route: 048
     Dates: start: 20121001

REACTIONS (3)
  - Diabetic foot [Unknown]
  - Abdominal distension [Unknown]
  - Liver transplant rejection [Unknown]
